FAERS Safety Report 18661387 (Version 2)
Quarter: 2021Q1

REPORT INFORMATION
  Report Type: Spontaneous
  Country: NL (occurrence: NL)
  Receive Date: 20201224
  Receipt Date: 20210209
  Transmission Date: 20210419
  Serious: Yes (Disabling)
  Sender: FDA-Public Use
  Company Number: NVSC2020NL165260

PATIENT
  Age: 61 Year
  Sex: Male

DRUGS (6)
  1. TERIFLUNOMIDE. [Suspect]
     Active Substance: TERIFLUNOMIDE
     Indication: RELAPSING-REMITTING MULTIPLE SCLEROSIS
     Dosage: 14 MG,QD (14 MG, QD)
     Route: 048
     Dates: start: 202001
  2. IRBESARTAN. [Concomitant]
     Active Substance: IRBESARTAN
     Indication: PRODUCT USED FOR UNKNOWN INDICATION
     Dosage: UNK
     Route: 065
  3. IRBESARTAN/HYDROCHLOROTHIAZIDE [Suspect]
     Active Substance: HYDROCHLOROTHIAZIDE\IRBESARTAN
     Indication: BLOOD PRESSURE INCREASED
     Dosage: UNK UNK, QD, (150/12.5 MG)
     Route: 065
     Dates: start: 20200504
  4. ACETYLSALICYLIC ACID [Concomitant]
     Active Substance: ASPIRIN
     Indication: PRODUCT USED FOR UNKNOWN INDICATION
     Dosage: UNK
     Route: 065
  5. OMEPRAZOLE. [Concomitant]
     Active Substance: OMEPRAZOLE
     Indication: PRODUCT USED FOR UNKNOWN INDICATION
     Dosage: 20 MG
     Route: 048
  6. ROSUVASTATIN. [Concomitant]
     Active Substance: ROSUVASTATIN
     Indication: PRODUCT USED FOR UNKNOWN INDICATION
     Dosage: 5 MG
     Route: 048

REACTIONS (10)
  - Gait disturbance [Unknown]
  - Hypersomnia [Not Recovered/Not Resolved]
  - Fear of falling [Unknown]
  - Dysuria [Not Recovered/Not Resolved]
  - Decreased appetite [Unknown]
  - Dyspnoea [Recovered/Resolved]
  - Product dose omission in error [Unknown]
  - Hyperventilation [Unknown]
  - Blood pressure increased [Recovering/Resolving]
  - Overweight [Recovering/Resolving]

NARRATIVE: CASE EVENT DATE: 2020
